FAERS Safety Report 7464759-1 (Version None)
Quarter: 2011Q2

REPORT INFORMATION
  Report Type: 
  Country: None (occurrence: None)
  Receive Date: 20110509
  Receipt Date: 20110428
  Transmission Date: 20111010
  Serious: Yes (Other)
  Sender: FDA-Public Use
  Company Number: US-US-EMD SERONO, INC.-7056280

PATIENT
  Sex: Female

DRUGS (1)
  1. REBIF [Suspect]
     Indication: PRODUCT USED FOR UNKNOWN INDICATION
     Route: 058
     Dates: start: 20100318

REACTIONS (10)
  - FALL [None]
  - NAUSEA [None]
  - HEADACHE [None]
  - FATIGUE [None]
  - POLLAKIURIA [None]
  - HEART RATE INCREASED [None]
  - WRIST FRACTURE [None]
  - INSOMNIA [None]
  - HYPERPARATHYROIDISM [None]
  - BALANCE DISORDER [None]
